FAERS Safety Report 8518752-8 (Version None)
Quarter: 2012Q3

REPORT INFORMATION
  Report Type: 
  Country: None (occurrence: None)
  Receive Date: 20120718
  Receipt Date: 20120710
  Transmission Date: 20120928
  Serious: Yes (Hospitalization, Other)
  Sender: FDA-Public Use
  Company Number: PHHY2012CA023596

PATIENT
  Sex: Female

DRUGS (4)
  1. EXJADE [Suspect]
     Indication: IRON OVERLOAD
     Dosage: 850 MG, UNK
     Route: 048
  2. NAPROXEN [Concomitant]
  3. EXJADE [Suspect]
     Indication: MYELODYSPLASTIC SYNDROME
     Dosage: 800 MG, UNK
     Route: 048
  4. EXJADE [Suspect]
     Dosage: 875 MG, DAILY
     Route: 048
     Dates: start: 20120201, end: 20120508

REACTIONS (18)
  - MYALGIA [None]
  - URINE COLOUR ABNORMAL [None]
  - DYSPNOEA [None]
  - PLEURAL EFFUSION [None]
  - INFLUENZA LIKE ILLNESS [None]
  - PERICARDITIS [None]
  - PERICARDIAL EFFUSION [None]
  - OROPHARYNGEAL PAIN [None]
  - CHEST DISCOMFORT [None]
  - PYREXIA [None]
  - DIARRHOEA [None]
  - PNEUMONIA [None]
  - ATELECTASIS [None]
  - RESPIRATORY DISORDER [None]
  - PLEURISY [None]
  - CHEST PAIN [None]
  - BONE PAIN [None]
  - FATIGUE [None]
